FAERS Safety Report 17977735 (Version 1)
Quarter: 2020Q3

REPORT INFORMATION
  Report Type: Spontaneous
  Country: IN (occurrence: IN)
  Receive Date: 20200703
  Receipt Date: 20200703
  Transmission Date: 20201103
  Serious: No
  Sender: FDA-Public Use
  Company Number: IN-LUPIN LIMITED-2019-07400

PATIENT
  Age: 7 Month
  Sex: Male

DRUGS (3)
  1. ODOXIL SUSP PREMIX 125 MG/5 ML [Suspect]
     Active Substance: CEFADROXIL
     Indication: COUGH
  2. LEVOLIN [LEVOSALBUTAMOL] [Concomitant]
     Indication: COUGH
     Dosage: 1.5 MILLILITER, TID
     Route: 048
     Dates: start: 20191108
  3. ODOXIL SUSP PREMIX 125 MG/5 ML [Suspect]
     Active Substance: CEFADROXIL
     Indication: DYSPHONIA
     Dosage: 3.5 MILLILITER, BID
     Route: 048
     Dates: start: 20191108

REACTIONS (1)
  - Faeces discoloured [Not Recovered/Not Resolved]

NARRATIVE: CASE EVENT DATE: 20191109
